FAERS Safety Report 21350446 (Version 1)
Quarter: 2022Q3

REPORT INFORMATION
  Report Type: Spontaneous
  Country: CN (occurrence: CN)
  Receive Date: 20220919
  Receipt Date: 20220919
  Transmission Date: 20221027
  Serious: Yes (Hospitalization, Other)
  Sender: FDA-Public Use
  Company Number: CN-SANOFI-01277832

PATIENT
  Age: 66 Year
  Sex: Female

DRUGS (2)
  1. LANTUS [Suspect]
     Active Substance: INSULIN GLARGINE
     Indication: Diabetes mellitus
     Dosage: 15 IU, QD
     Route: 058
  2. HUMALOG [Concomitant]
     Active Substance: INSULIN LISPRO
     Dosage: UNKNOWN

REACTIONS (6)
  - Skin injury [Recovering/Resolving]
  - Condition aggravated [Recovering/Resolving]
  - Ulcer [Recovering/Resolving]
  - Back pain [Recovering/Resolving]
  - Blood glucose increased [Recovering/Resolving]
  - Inappropriate schedule of product administration [Unknown]
